FAERS Safety Report 6962614-4 (Version None)
Quarter: 2010Q3

REPORT INFORMATION
  Report Type: 
  Country: None (occurrence: None)
  Receive Date: 20100902
  Receipt Date: 20100823
  Transmission Date: 20110219
  Serious: Yes (Other)
  Sender: FDA-Public Use
  Company Number: US-PFIZER INC-2010106219

PATIENT
  Sex: Female
  Weight: 91 kg

DRUGS (1)
  1. CHANTIX [Suspect]
     Indication: SMOKING CESSATION THERAPY
     Dosage: 0.5MG,DAILY
     Route: 048
     Dates: start: 20100101

REACTIONS (1)
  - BLOOD PRESSURE FLUCTUATION [None]
